FAERS Safety Report 5258552-8 (Version None)
Quarter: 2007Q1

REPORT INFORMATION
  Report Type: 
  Country: None (occurrence: None)
  Receive Date: 20070308
  Receipt Date: 20070226
  Transmission Date: 20070707
  Serious: Yes (Death, Other)
  Sender: FDA-Public Use
  Company Number: DE-BRISTOL-MYERS SQUIBB COMPANY-13698808

PATIENT
  Age: 16 Year
  Sex: Female

DRUGS (8)
  1. METHOTREXATE [Suspect]
     Indication: BRAIN NEOPLASM MALIGNANT
  2. CYCLOPHOSPHAMIDE [Suspect]
     Indication: BRAIN NEOPLASM MALIGNANT
  3. VINCRISTINE [Suspect]
     Indication: BRAIN NEOPLASM MALIGNANT
  4. ETOPOSIDE [Suspect]
     Indication: BRAIN NEOPLASM MALIGNANT
  5. CISPLATIN [Suspect]
     Indication: BRAIN NEOPLASM MALIGNANT
  6. CARBOPLATIN [Suspect]
     Indication: BRAIN NEOPLASM MALIGNANT
  7. CYTARABINE [Suspect]
     Indication: BRAIN NEOPLASM MALIGNANT
  8. RADIOTHERAPY [Suspect]
     Indication: BRAIN NEOPLASM MALIGNANT

REACTIONS (1)
  - GLIOMA [None]
